FAERS Safety Report 14151823 (Version 1)
Quarter: 2017Q4

REPORT INFORMATION
  Report Type: Spontaneous
  Country: US (occurrence: US)
  Receive Date: 20171101
  Receipt Date: 20171101
  Transmission Date: 20180321
  Serious: Yes (Other)
  Sender: FDA-Public Use
  Company Number: None

PATIENT
  Age: 77 Year
  Sex: Female
  Weight: 85.5 kg

DRUGS (13)
  1. METROPOL [Concomitant]
  2. BUMETANDE [Concomitant]
  3. LYRICA [Concomitant]
     Active Substance: PREGABALIN
  4. NOVOLOG [Concomitant]
     Active Substance: INSULIN ASPART
  5. VITAMNE D SOFT GELS [Concomitant]
  6. ADVAIR HFA [Concomitant]
     Active Substance: FLUTICASONE PROPIONATE\SALMETEROL XINAFOATE
  7. LEVOFLOXACIN. [Suspect]
     Active Substance: LEVOFLOXACIN
     Indication: PULMONARY CONGESTION
     Dosage: ?          OTHER STRENGTH:7;QUANTITY:7 TABLET(S);?
     Route: 048
     Dates: start: 20171020, end: 20171026
  8. BABY ASPIRIN [Concomitant]
     Active Substance: ASPIRIN
  9. LEVEMIR [Concomitant]
     Active Substance: INSULIN DETEMIR
  10. ALLOPURINOL. [Concomitant]
     Active Substance: ALLOPURINOL
  11. ROPINIROLE. [Concomitant]
     Active Substance: ROPINIROLE
  12. CARITA [Concomitant]
  13. MULTI VIRAMIN [Concomitant]

REACTIONS (2)
  - Pain in extremity [None]
  - Contusion [None]

NARRATIVE: CASE EVENT DATE: 20171021
